FAERS Safety Report 25111825 (Version 1)
Quarter: 2025Q1

REPORT INFORMATION
  Report Type: Spontaneous
  Country: US (occurrence: US)
  Receive Date: 20250324
  Receipt Date: 20250324
  Transmission Date: 20250408
  Serious: No
  Sender: PFIZER
  Company Number: US-PFIZER INC-PV202500034484

PATIENT
  Sex: Female

DRUGS (2)
  1. ENCORAFENIB [Suspect]
     Active Substance: ENCORAFENIB
  2. CETUXIMAB [Concomitant]
     Active Substance: CETUXIMAB

REACTIONS (2)
  - Arthralgia [Unknown]
  - Fatigue [Unknown]
